FAERS Safety Report 16066037 (Version 1)
Quarter: 2019Q1

REPORT INFORMATION
  Report Type: Spontaneous
  Country: FR (occurrence: FR)
  Receive Date: 20190313
  Receipt Date: 20190313
  Transmission Date: 20190418
  Serious: Yes (Hospitalization)
  Sender: FDA-Public Use
  Company Number: FR-ACCORD-112267

PATIENT
  Age: 62 Year
  Sex: Female
  Weight: 58.5 kg

DRUGS (16)
  1. AMETYCINE [Suspect]
     Active Substance: MITOMYCIN
     Indication: ANAL CANCER
     Route: 042
     Dates: start: 20180625, end: 20180625
  2. HIRUCREME [Concomitant]
  3. ANDROCUR [Concomitant]
     Active Substance: CYPROTERONE ACETATE
  4. LORAZEPAM. [Concomitant]
     Active Substance: LORAZEPAM
  5. MORPHINE [Concomitant]
     Active Substance: MORPHINE
  6. FLAGYL [Concomitant]
     Active Substance: METRONIDAZOLE\METRONIDAZOLE HYDROCHLORIDE
  7. FLUOROURACIL. [Suspect]
     Active Substance: FLUOROURACIL
     Indication: ANAL CANCER
     Dosage: 1300 MG/DAY OVER 5 DAYS THEN 1100 MG DAILY OVER 5 DAYS
     Route: 042
     Dates: start: 20180625, end: 20180728
  8. XANAX [Concomitant]
     Active Substance: ALPRAZOLAM
  9. SOLU-MEDROL [Concomitant]
     Active Substance: METHYLPREDNISOLONE SODIUM SUCCINATE
  10. ESTREVA [Concomitant]
     Active Substance: ESTRADIOL
     Dosage: 0.1 %
  11. TRIDESONIT [Concomitant]
     Active Substance: DESONIDE
     Dosage: 0.05 %
  12. ROCEPHINE [Concomitant]
     Active Substance: CEFTRIAXONE SODIUM
  13. PRIMPERAN [Concomitant]
     Active Substance: METOCLOPRAMIDE HYDROCHLORIDE
  14. PREDNISOLONE. [Concomitant]
     Active Substance: PREDNISOLONE
  15. PLITICAN [Concomitant]
     Active Substance: ALIZAPRIDE HYDROCHLORIDE
  16. PARACETAMOL [Concomitant]
     Active Substance: ACETAMINOPHEN

REACTIONS (1)
  - Acute febrile neutrophilic dermatosis [Recovering/Resolving]

NARRATIVE: CASE EVENT DATE: 20180805
